FAERS Safety Report 23787539 (Version 1)
Quarter: 2024Q2

REPORT INFORMATION
  Report Type: Spontaneous
  Country: CN (occurrence: CN)
  Receive Date: 20240426
  Receipt Date: 20240426
  Transmission Date: 20240715
  Serious: Yes (Hospitalization, Other)
  Sender: FDA-Public Use
  Company Number: CN-PBT-009295

PATIENT
  Age: 37 Year
  Sex: Female

DRUGS (5)
  1. TACROLIMUS [Interacting]
     Active Substance: TACROLIMUS
     Indication: Connective tissue disorder
     Route: 048
     Dates: end: 20230108
  2. PREDNISONE [Suspect]
     Active Substance: PREDNISONE
     Indication: Connective tissue disorder
     Route: 048
  3. NIRMATRELVIR\RITONAVIR [Interacting]
     Active Substance: NIRMATRELVIR\RITONAVIR
     Indication: COVID-19
     Dosage: 300 + 100 MG
     Route: 048
     Dates: start: 20230105, end: 20230110
  4. CALCIUM [Concomitant]
     Active Substance: CALCIUM
     Indication: Product used for unknown indication
     Route: 048
  5. VITAMIN D [Concomitant]
     Active Substance: VITAMIN D NOS
     Indication: Product used for unknown indication
     Route: 048

REACTIONS (5)
  - Ileus paralytic [Recovered/Resolved]
  - COVID-19 [Recovering/Resolving]
  - Drug interaction [Recovered/Resolved]
  - Toxicity to various agents [Unknown]
  - Product use in unapproved indication [Unknown]
